FAERS Safety Report 7285336-1 (Version None)
Quarter: 2011Q1

REPORT INFORMATION
  Report Type: 
  Country: None (occurrence: None)
  Receive Date: 20110210
  Receipt Date: 20110202
  Transmission Date: 20110831
  Serious: Yes (Hospitalization)
  Sender: FDA-Public Use
  Company Number: GB-ROCHE-753520

PATIENT
  Sex: Female

DRUGS (1)
  1. LARIAM [Suspect]
     Indication: MALARIA
     Route: 065
     Dates: start: 20060101, end: 20060101

REACTIONS (3)
  - DEPRESSION [None]
  - MENTAL DISORDER [None]
  - WEIGHT DECREASED [None]
